FAERS Safety Report 7554496-7 (Version None)
Quarter: 2011Q2

REPORT INFORMATION
  Report Type: 
  Country: None (occurrence: None)
  Receive Date: 20110617
  Receipt Date: 20110510
  Transmission Date: 20111010
  Serious: Yes (Hospitalization)
  Sender: FDA-Public Use
  Company Number: B0719097A

PATIENT
  Sex: Female

DRUGS (14)
  1. AMOXICILLIN [Suspect]
     Indication: INFECTION PROPHYLAXIS
     Dosage: 750MG PER DAY
     Route: 048
     Dates: start: 20110507, end: 20110509
  2. REMERON [Concomitant]
     Route: 048
     Dates: start: 20110401, end: 20110519
  3. AMOBAN [Concomitant]
     Indication: PAIN
     Route: 048
     Dates: start: 20090401
  4. LENDORMIN [Concomitant]
     Dosage: .25MG PER DAY
     Route: 048
     Dates: start: 20091001
  5. SEPAZON [Concomitant]
     Route: 048
     Dates: start: 20090401
  6. ALLEGRA [Concomitant]
     Dosage: 120MG PER DAY
     Route: 048
     Dates: start: 20110509
  7. LAMICTAL [Suspect]
     Indication: BIPOLAR DISORDER
     Dosage: 50MG PER DAY
     Route: 048
     Dates: start: 20110428, end: 20110509
  8. AMOXICILLIN [Suspect]
     Indication: TOOTH EXTRACTION
     Dosage: 750MG PER DAY
     Route: 048
     Dates: start: 20110422, end: 20110425
  9. NITRAZEPAM [Concomitant]
     Route: 048
  10. LIMAS [Concomitant]
     Dosage: 400MG PER DAY
     Route: 048
     Dates: start: 20100501
  11. MAGMITT [Concomitant]
     Route: 048
  12. LOXONIN [Concomitant]
     Route: 048
  13. SEROQUEL [Concomitant]
     Dosage: 200MG PER DAY
     Route: 048
     Dates: start: 20090301
  14. TEGRETOL [Concomitant]
     Dosage: 2000MG PER DAY
     Route: 048
     Dates: start: 20110327

REACTIONS (5)
  - LYMPHADENOPATHY [None]
  - RASH [None]
  - LYMPH NODE PAIN [None]
  - PYREXIA [None]
  - DYSGEUSIA [None]
